FAERS Safety Report 18804888 (Version 1)
Quarter: 2021Q1

REPORT INFORMATION
  Report Type: Report from Study
  Country: CN (occurrence: CN)
  Receive Date: 20210129
  Receipt Date: 20210129
  Transmission Date: 20210419
  Serious: Yes (Other)
  Sender: FDA-Public Use
  Company Number: CN-SUN PHARMACEUTICAL INDUSTRIES LTD-2021R1-276934

PATIENT
  Age: 74 Year
  Sex: Female

DRUGS (2)
  1. ASPIRIN. [Suspect]
     Active Substance: ASPIRIN
     Indication: DEEP VEIN THROMBOSIS
     Dosage: UNK,100 MILLIGRAM
     Route: 065
  2. FRAXIPARINE [Suspect]
     Active Substance: NADROPARIN CALCIUM
     Indication: DEEP VEIN THROMBOSIS
     Dosage: UNK, 0.6 MILLILITER
     Route: 058

REACTIONS (2)
  - Acute coronary syndrome [Unknown]
  - Haemorrhage [Unknown]
